FAERS Safety Report 7031509-2 (Version None)
Quarter: 2010Q4

REPORT INFORMATION
  Report Type: 
  Country: None (occurrence: None)
  Receive Date: 20101006
  Receipt Date: 20101006
  Transmission Date: 20110411
  Serious: No
  Sender: FDA-Public Use
  Company Number: None

PATIENT
  Age: 60 Year
  Sex: Female
  Weight: 53.978 kg

DRUGS (1)
  1. ACTONEL [Suspect]
     Indication: OSTEOPENIA
     Dosage: 1 MONTHLY PO  (ONE TIME ONLY)
     Route: 048
     Dates: start: 20100923, end: 20100923

REACTIONS (13)
  - ARTHRALGIA [None]
  - DECREASED APPETITE [None]
  - DIARRHOEA [None]
  - EYE IRRITATION [None]
  - FLANK PAIN [None]
  - HEADACHE [None]
  - HYPERHIDROSIS [None]
  - NAUSEA [None]
  - NECK PAIN [None]
  - PAIN [None]
  - PELVIC PAIN [None]
  - PYREXIA [None]
  - RENAL PAIN [None]
